FAERS Safety Report 8075891-6 (Version None)
Quarter: 2012Q1

REPORT INFORMATION
  Report Type: 
  Country: None (occurrence: None)
  Receive Date: 20120125
  Receipt Date: 20120125
  Transmission Date: 20120608
  Serious: No
  Sender: FDA-Public Use
  Company Number: None

PATIENT
  Age: 57 Year
  Sex: Male
  Weight: 107.3 kg

DRUGS (2)
  1. PIPERACILLIN AND TAZOBACTAM [Suspect]
     Indication: TUBULOINTERSTITIAL NEPHRITIS
     Dosage: 2.5 GM OTHER IV
     Route: 042
     Dates: start: 20110812, end: 20110816
  2. VANCOMYCIN [Suspect]
     Dosage: 1500 MG HS IV
     Route: 042
     Dates: start: 20110812

REACTIONS (1)
  - NEPHRITIS [None]
